FAERS Safety Report 4551020-8 (Version None)
Quarter: 2005Q1

REPORT INFORMATION
  Report Type: 
  Country: None (occurrence: None)
  Receive Date: 20050113
  Receipt Date: 20031217
  Transmission Date: 20050727
  Serious: Yes (Hospitalization)
  Sender: FDA-Public Use
  Company Number: US-BRISTOL-MYERS SQUIBB COMPANY-12460143

PATIENT
  Age: 24 Year
  Sex: Female

DRUGS (7)
  1. DESYREL [Suspect]
     Indication: TRAUMATIC BRAIN INJURY
     Route: 048
     Dates: start: 20031128, end: 20031211
  2. NEURONTIN [Concomitant]
     Dosage: DOSAGE: 100MG TWICE DAILY + 400MG AT NIGHT + 600MG DAILY
  3. DIDRONEL [Concomitant]
  4. TRILEPTAL [Concomitant]
  5. ACETAMINOPHEN [Concomitant]
  6. REMERON [Concomitant]
     Dosage: TAKEN AT NIGHT
  7. SENOKOT [Concomitant]
     Dosage: TAKEN AT BEDTIME

REACTIONS (1)
  - ABNORMAL DREAMS [None]
